FAERS Safety Report 7463539-0 (Version None)
Quarter: 2011Q2

REPORT INFORMATION
  Report Type: 
  Country: None (occurrence: None)
  Receive Date: 20110506
  Receipt Date: 20110428
  Transmission Date: 20111010
  Serious: Yes (Death, Hospitalization)
  Sender: FDA-Public Use
  Company Number: JP-MPIJNJ-2011-01751

PATIENT

DRUGS (10)
  1. KESELAN [Concomitant]
     Route: 048
  2. VELCADE [Suspect]
     Indication: MULTIPLE MYELOMA
     Dosage: 1.3 MG/M2, UNK
     Route: 042
     Dates: start: 20110322, end: 20110403
  3. TAKEPRON [Concomitant]
     Route: 048
  4. DEPAS [Concomitant]
     Route: 048
  5. MAXIPIME [Suspect]
     Indication: PRODUCT USED FOR UNKNOWN INDICATION
     Dosage: UNK
     Route: 042
  6. MAINTATE [Concomitant]
     Route: 048
  7. THYRADIN [Concomitant]
     Route: 048
  8. LASIX [Concomitant]
     Route: 065
  9. ZOVIRAX                            /00587301/ [Concomitant]
     Route: 065
  10. BARACLUDE [Concomitant]
     Route: 065

REACTIONS (3)
  - QUADRIPLEGIA [None]
  - GUILLAIN-BARRE SYNDROME [None]
  - ALTERED STATE OF CONSCIOUSNESS [None]
